FAERS Safety Report 7020764-0 (Version None)
Quarter: 2010Q3

REPORT INFORMATION
  Report Type: 
  Country: None (occurrence: None)
  Receive Date: 20100929
  Receipt Date: 20100805
  Transmission Date: 20110219
  Serious: No
  Sender: FDA-Public Use
  Company Number: US-JNJFOC-20100707736

PATIENT
  Sex: Female
  Weight: 45.36 kg

DRUGS (4)
  1. INVEGA SUSTENNA [Suspect]
     Indication: SCHIZOPHRENIA
     Route: 030
  2. INVEGA SUSTENNA [Suspect]
     Route: 030
  3. INVEGA SUSTENNA [Suspect]
     Route: 030
  4. INVEGA SUSTENNA [Suspect]
     Route: 030

REACTIONS (2)
  - INJECTION SITE HAEMATOMA [None]
  - INJECTION SITE NODULE [None]
